FAERS Safety Report 13547893 (Version 4)
Quarter: 2020Q3

REPORT INFORMATION
  Report Type: Spontaneous
  Country: US (occurrence: US)
  Receive Date: 20170516
  Receipt Date: 20200924
  Transmission Date: 20201102
  Serious: No
  Sender: FDA-Public Use
  Company Number: US-ELI_LILLY_AND_COMPANY-US201705001801

PATIENT
  Age: 63 Year
  Sex: Male

DRUGS (20)
  1. HUMALOG [Suspect]
     Active Substance: INSULIN LISPRO
     Indication: TYPE 2 DIABETES MELLITUS
     Dosage: 5 U, DAILY
     Route: 058
     Dates: start: 2015
  2. HUMALOG [Suspect]
     Active Substance: INSULIN LISPRO
     Dosage: UNK UNK, UNKNOWN
     Route: 058
  3. HUMALOG [Suspect]
     Active Substance: INSULIN LISPRO
     Dosage: UNK UNK, UNKNOWN
     Route: 058
  4. HUMALOG [Suspect]
     Active Substance: INSULIN LISPRO
     Dosage: 15 U, DAILY
     Dates: start: 2014
  5. HUMALOG [Suspect]
     Active Substance: INSULIN LISPRO
     Dosage: 15 U, DAILY
     Dates: start: 2014
  6. HUMALOG [Suspect]
     Active Substance: INSULIN LISPRO
     Dosage: 25 U, EACH EVENING
     Dates: start: 2014
  7. HUMALOG [Suspect]
     Active Substance: INSULIN LISPRO
     Dosage: UNK UNK, UNKNOWN
     Route: 058
  8. HUMALOG [Suspect]
     Active Substance: INSULIN LISPRO
     Dosage: UNK UNK, UNKNOWN
     Route: 058
  9. HUMALOG [Suspect]
     Active Substance: INSULIN LISPRO
     Dosage: UNK UNK, UNKNOWN
     Route: 058
  10. HUMALOG [Suspect]
     Active Substance: INSULIN LISPRO
     Dosage: 25 U, EACH EVENING
     Dates: start: 2014
  11. HUMALOG [Suspect]
     Active Substance: INSULIN LISPRO
     Dosage: 25 U, EACH EVENING
     Dates: start: 2014
  12. HUMALOG [Suspect]
     Active Substance: INSULIN LISPRO
     Dosage: UNK UNK, UNKNOWN
     Route: 058
  13. GLIPIZIDE. [Concomitant]
     Active Substance: GLIPIZIDE
     Dosage: 5 MG, UNK
  14. HUMALOG [Suspect]
     Active Substance: INSULIN LISPRO
     Dosage: 15 U, DAILY
     Dates: start: 2014
  15. HUMALOG [Suspect]
     Active Substance: INSULIN LISPRO
     Dosage: 25 U, EACH EVENING
     Dates: start: 2014
  16. HUMALOG [Suspect]
     Active Substance: INSULIN LISPRO
     Dosage: UNK UNK, PRN
     Route: 065
  17. GLIPIZIDE. [Concomitant]
     Active Substance: GLIPIZIDE
     Indication: DIABETES MELLITUS
     Dosage: 10 MG, EACH MORNING
  18. LANTUS [Concomitant]
     Active Substance: INSULIN GLARGINE
     Indication: TYPE 2 DIABETES MELLITUS
     Dosage: 50 U, EACH EVENING
  19. HUMALOG [Suspect]
     Active Substance: INSULIN LISPRO
     Dosage: 15 U, DAILY
     Dates: start: 2014
  20. HUMALOG [Suspect]
     Active Substance: INSULIN LISPRO
     Dosage: UNK UNK, PRN
     Route: 065

REACTIONS (5)
  - Injection site haemorrhage [Unknown]
  - Injection site bruising [Recovering/Resolving]
  - Blood glucose increased [Recovered/Resolved]
  - Injection site scar [Recovering/Resolving]
  - Hyperkeratosis [Unknown]

NARRATIVE: CASE EVENT DATE: 20200827
